FAERS Safety Report 5139533-1 (Version None)
Quarter: 2006Q4

REPORT INFORMATION
  Report Type: 
  Country: None (occurrence: None)
  Receive Date: 20061024
  Receipt Date: 20061011
  Transmission Date: 20070319
  Serious: Yes (Death, Other)
  Sender: FDA-Public Use
  Company Number: 2006125281

PATIENT
  Age: 72 Year
  Sex: Female

DRUGS (9)
  1. ZELDOX (CAPSULES) (ZIPRASIDONE) [Suspect]
     Indication: DEPRESSION
  2. CIPRALEX (ESCITALOPRAM) [Concomitant]
  3. TRITTICO (TRAZODONE) [Concomitant]
  4. THYREX (LEVOTHYROXINE SODIUM) [Concomitant]
  5. LASIX [Concomitant]
  6. INHIBAC PLUS (CILAZAPRIL, HYDROCHLOROTHIAZIDE) [Concomitant]
  7. LORAZEPAM [Concomitant]
  8. LOVENOX [Concomitant]
  9. SEROQUEL [Concomitant]

REACTIONS (6)
  - CYANOSIS [None]
  - DEHYDRATION [None]
  - DYSPNOEA [None]
  - PULMONARY EMBOLISM [None]
  - TACHYCARDIA [None]
  - WEIGHT DECREASED [None]
